FAERS Safety Report 6612405-9 (Version None)
Quarter: 2010Q1

REPORT INFORMATION
  Report Type: 
  Country: None (occurrence: None)
  Receive Date: 20100303
  Receipt Date: 20100219
  Transmission Date: 20100710
  Serious: Yes (Hospitalization)
  Sender: FDA-Public Use
  Company Number: PHHY2010FR10185

PATIENT
  Sex: Female

DRUGS (10)
  1. COTAREG [Suspect]
     Indication: HYPERTENSION
     Dosage: 160/25 MG, QD
     Dates: end: 20090823
  2. LASILIX [Suspect]
     Dosage: 40 MG, QD
     Dates: end: 20090823
  3. NOROXIN [Suspect]
     Dosage: 400 MG, BID
     Dates: start: 20080820, end: 20090831
  4. CORDARONE [Concomitant]
     Indication: ATRIAL FIBRILLATION
     Dosage: 200 MG DF 5 DAYS
  5. PREVISCAN [Concomitant]
     Dosage: 20 MG, 3/4 TABLET 6 DAYS OUT OF 7 AND 1/2 TABLET 1 DAY OUT OF 7
  6. LEXOMIL [Concomitant]
  7. NITRODERM [Concomitant]
     Dosage: 10 MG
  8. IMOVANE [Concomitant]
     Dosage: 7.5 MG
  9. COZAAR [Concomitant]
  10. TANAKAN [Concomitant]

REACTIONS (5)
  - ASTHENIA [None]
  - HYPOCHLORAEMIA [None]
  - HYPOKALAEMIA [None]
  - HYPONATRAEMIA [None]
  - VOMITING [None]
